FAERS Safety Report 9475230 (Version 2)
Quarter: 2013Q4

REPORT INFORMATION
  Report Type: Spontaneous
  Country: US (occurrence: US)
  Receive Date: 20130825
  Receipt Date: 20131004
  Transmission Date: 20140711
  Serious: No
  Sender: FDA-Public Use
  Company Number: US-009507513-1308USA008546

PATIENT
  Age: 71 Year
  Sex: 0

DRUGS (3)
  1. COSOPT PF [Suspect]
     Indication: GLAUCOMA
     Dosage: UNK
  2. TRUSOPT [Suspect]
     Indication: GLAUCOMA
  3. AZOPT [Suspect]
     Indication: GLAUCOMA

REACTIONS (2)
  - Eyelid oedema [Unknown]
  - Rash [Unknown]
